FAERS Safety Report 9374865 (Version 2)
Quarter: 2014Q1

REPORT INFORMATION
  Report Type: Spontaneous
  Country: NL (occurrence: NL)
  Receive Date: 20130628
  Receipt Date: 20140110
  Transmission Date: 20141002
  Serious: Yes (Life-Threatening, Other)
  Sender: FDA-Public Use
  Company Number: NL-009507513-1306NLD011227

PATIENT
  Age: 24 Year
  Sex: Female

DRUGS (1)
  1. IMPLANON NXT [Suspect]
     Indication: CONTRACEPTION
     Dosage: UNK
     Route: 058
     Dates: start: 20110131, end: 201206

REACTIONS (5)
  - Breast cancer [Recovering/Resolving]
  - Device difficult to use [Recovered/Resolved]
  - Overdose [Recovered/Resolved]
  - Breast operation [Unknown]
  - Radiotherapy [Unknown]
